FAERS Safety Report 6616664 (Version 3)
Quarter: 2013Q2

REPORT INFORMATION
  Report Type: Spontaneous
  Country: GB (occurrence: GB)
  Receive Date: 20080417
  Receipt Date: 20130528
  Transmission Date: 20140414
  Serious: Yes (Other)
  Sender: FDA-Public Use
  Company Number: GB-JNJFOC-20080402555

PATIENT
  Sex: Male

DRUGS (2)
  1. IBUPROFEN [Suspect]
     Route: 048
  2. IBUPROFEN [Suspect]
     Indication: PRODUCT USED FOR UNKNOWN INDICATION
     Route: 048

REACTIONS (4)
  - Ageusia [Recovered/Resolved]
  - Blister [Recovered/Resolved]
  - Tongue oedema [Recovered/Resolved]
  - Mouth ulceration [Recovered/Resolved]
